FAERS Safety Report 6559768-0 (Version None)
Quarter: 2010Q1

REPORT INFORMATION
  Report Type: 
  Country: None (occurrence: None)
  Receive Date: 20100129
  Receipt Date: 20090910
  Transmission Date: 20100710
  Serious: No
  Sender: FDA-Public Use
  Company Number: US-ABBOTT-09P-163-0596994-00

PATIENT
  Sex: Female
  Weight: 76.726 kg

DRUGS (3)
  1. HUMIRA [Suspect]
     Indication: RHEUMATOID ARTHRITIS
     Dates: start: 20090506, end: 20090819
  2. METHOTREXATE [Concomitant]
     Indication: DRUG USE FOR UNKNOWN INDICATION
     Dosage: 6 PILLS (BEFORE STARTING HUMIRA)
     Dates: start: 20090506
  3. METHOTREXATE [Concomitant]
     Dosage: 4 PILLS

REACTIONS (3)
  - FUNGAL INFECTION [None]
  - PAIN IN EXTREMITY [None]
  - STOMATITIS [None]
